FAERS Safety Report 8419505-1 (Version None)
Quarter: 2012Q2

REPORT INFORMATION
  Report Type: 
  Country: None (occurrence: None)
  Receive Date: 20120607
  Receipt Date: 20110512
  Transmission Date: 20120825
  Serious: No
  Sender: FDA-Public Use
  Company Number: US-BRISTOL-MYERS SQUIBB COMPANY-15741135

PATIENT
  Age: 46 Year
  Sex: Male

DRUGS (2)
  1. SUSTIVA [Suspect]
     Dates: start: 20101119
  2. TRUVADA [Suspect]
     Dates: start: 20101119

REACTIONS (1)
  - TREATMENT NONCOMPLIANCE [None]
